FAERS Safety Report 6112959-5 (Version None)
Quarter: 2009Q1

REPORT INFORMATION
  Report Type: 
  Country: None (occurrence: None)
  Receive Date: 20090312
  Receipt Date: 20090312
  Transmission Date: 20090719
  Serious: Yes (Other)
  Sender: FDA-Public Use
  Company Number: A0772729A

PATIENT
  Age: 41 Year
  Sex: Male

DRUGS (8)
  1. NICODERM CQ [Suspect]
     Indication: SMOKING CESSATION THERAPY
     Route: 062
     Dates: start: 20090206
  2. MORPHINE [Concomitant]
  3. VICODIN [Concomitant]
  4. ROBAXIN [Concomitant]
  5. COLACE [Concomitant]
  6. ULTRAM [Concomitant]
  7. LYRICA [Concomitant]
  8. VEGETABLE LAXATIVE [Concomitant]

REACTIONS (7)
  - APPLICATION SITE ERYTHEMA [None]
  - INTENTIONAL DRUG MISUSE [None]
  - NICOTINE DEPENDENCE [None]
  - PRODUCT QUALITY ISSUE [None]
  - PRURITUS [None]
  - SCAB [None]
  - WOUND HAEMORRHAGE [None]
